FAERS Safety Report 9975794 (Version 1)
Quarter: 2014Q1

REPORT INFORMATION
  Report Type: Report from Study
  Country: US (occurrence: US)
  Receive Date: 20140306
  Receipt Date: 20140306
  Transmission Date: 20141002
  Serious: No
  Sender: FDA-Public Use
  Company Number: US-ABBVIE-13P-163-1155014-00

PATIENT
  Age: 20 Year
  Sex: Male

DRUGS (5)
  1. HUMIRA [Suspect]
     Indication: PSORIASIS
     Dates: start: 2011
  2. HUMIRA [Suspect]
     Dosage: RESTARTED WITH 2 INJECTIONS
     Dates: start: 20130919
  3. HUMIRA [Suspect]
     Route: 050
     Dates: start: 20130926, end: 20130926
  4. FOLIC ACID [Concomitant]
     Indication: PRODUCT USED FOR UNKNOWN INDICATION
     Dosage: 1 MG DAILY
  5. METHOTREXATE [Concomitant]
     Indication: PSORIASIS
     Dates: start: 201308

REACTIONS (1)
  - Psoriasis [Recovering/Resolving]
